FAERS Safety Report 7255674-7 (Version None)
Quarter: 2011Q1

REPORT INFORMATION
  Report Type: 
  Country: None (occurrence: None)
  Receive Date: 20110129
  Receipt Date: 20100824
  Transmission Date: 20110831
  Serious: No
  Sender: FDA-Public Use
  Company Number: US-ABBOTT-10P-163-0666824-00

PATIENT
  Sex: Female
  Weight: 113.5 kg

DRUGS (2)
  1. METHOTREXATE [Concomitant]
     Indication: RHEUMATOID ARTHRITIS
     Dosage: 7 PILLS EVERY SATURDAY
  2. HUMIRA [Suspect]
     Indication: RHEUMATOID ARTHRITIS
     Route: 058
     Dates: start: 20100820

REACTIONS (4)
  - MUSCULOSKELETAL PAIN [None]
  - ARTHRALGIA [None]
  - PAIN IN EXTREMITY [None]
  - FATIGUE [None]
